FAERS Safety Report 4900552-9 (Version None)
Quarter: 2006Q1

REPORT INFORMATION
  Report Type: 
  Country: None (occurrence: None)
  Receive Date: 20060127
  Receipt Date: 20051111
  Transmission Date: 20060701
  Serious: Yes (Other)
  Sender: FDA-Public Use
  Company Number: CLOF-10143

PATIENT
  Age: 67 Year
  Sex: Male

DRUGS (11)
  1. CLOFARABINE [Suspect]
     Indication: ACUTE MYELOID LEUKAEMIA
     Dosage: 51.3 MG QD X 5 IV
     Route: 042
     Dates: start: 20050715, end: 20050719
  2. CYTARABINE [Suspect]
     Indication: ACUTE MYELOID LEUKAEMIA
     Dosage: 34.2 MG QD SC
     Route: 058
     Dates: start: 20050715, end: 20050728
  3. AMBISOME [Concomitant]
  4. CANCIDAS [Concomitant]
  5. LEVAQUIN [Concomitant]
  6. FLAGYL [Concomitant]
  7. DURAGESIC-100 [Concomitant]
  8. DARVON [Concomitant]
  9. PROTONIX [Concomitant]
  10. NORVASC [Concomitant]
  11. K-DUR 10 [Concomitant]

REACTIONS (2)
  - BONE MARROW FAILURE [None]
  - PLATELET COUNT DECREASED [None]
